FAERS Safety Report 6611356-3 (Version None)
Quarter: 2010Q1

REPORT INFORMATION
  Report Type: 
  Country: None (occurrence: None)
  Receive Date: 20100303
  Receipt Date: 20100223
  Transmission Date: 20100710
  Serious: Yes (Other)
  Sender: FDA-Public Use
  Company Number: CA-ASTRAZENECA-2010SE06361

PATIENT
  Age: 2 Week
  Sex: Male

DRUGS (2)
  1. XYLOCAINE [Suspect]
     Dosage: WITH EPINEPHRINE
     Dates: start: 20100211
  2. XYLOCAINE [Suspect]
     Dosage: WITHOUT EPINEPHRINE

REACTIONS (1)
  - DRUG LABEL CONFUSION [None]
